FAERS Safety Report 4336383-0 (Version None)
Quarter: 2004Q2

REPORT INFORMATION
  Report Type: 
  Country: None (occurrence: None)
  Receive Date: 20040409
  Receipt Date: 20040409
  Transmission Date: 20050107
  Serious: Yes (Death)
  Sender: FDA-Public Use
  Company Number: None

PATIENT
  Age: 65 Year
  Sex: Male
  Weight: 75 kg

DRUGS (5)
  1. DAPTOMYCIN 300 MG [Suspect]
     Indication: STAPHYLOCOCCAL SEPSIS
     Dosage: 300 MG IV Q 24 H
     Route: 042
     Dates: start: 20040330, end: 20040402
  2. AZACTAM [Concomitant]
  3. RIFAMPIN [Concomitant]
  4. DIFLUCAN [Concomitant]
  5. NEUPOGEN [Concomitant]

REACTIONS (1)
  - SUDDEN DEATH [None]
